FAERS Safety Report 6738633-X (Version None)
Quarter: 2010Q2

REPORT INFORMATION
  Report Type: 
  Country: None (occurrence: None)
  Receive Date: 20100524
  Receipt Date: 20100512
  Transmission Date: 20101027
  Serious: Yes (Other)
  Sender: FDA-Public Use
  Company Number: BR-PFIZER INC-2010047565

PATIENT
  Age: 52 Year
  Sex: Female
  Weight: 63 kg

DRUGS (7)
  1. LYRICA [Suspect]
     Indication: FIBROMYALGIA
     Dosage: 75 MG, 2X/DAY, EVERY 12 HOURS
     Route: 048
     Dates: start: 20100415
  2. LYRICA [Suspect]
     Indication: ANXIETY
  3. RIVOTRIL [Concomitant]
     Dosage: UNK
  4. CITALOPRAM [Concomitant]
     Dosage: UNK
  5. LOSARTAN [Concomitant]
     Dosage: UNK
  6. HYDROCHLOROTHIAZIDE [Concomitant]
     Dosage: UNK
  7. CAPTOPRIL [Concomitant]
     Dosage: UNK

REACTIONS (6)
  - BLOOD PRESSURE INCREASED [None]
  - FEELING DRUNK [None]
  - FORMICATION [None]
  - HEADACHE [None]
  - SENSATION OF HEAVINESS [None]
  - SOMNOLENCE [None]
